FAERS Safety Report 7108425-0 (Version None)
Quarter: 2010Q4

REPORT INFORMATION
  Report Type: 
  Country: None (occurrence: None)
  Receive Date: 20101117
  Receipt Date: 20101108
  Transmission Date: 20110411
  Serious: Yes (Other)
  Sender: FDA-Public Use
  Company Number: B0666979A

PATIENT
  Sex: Female
  Weight: 86 kg

DRUGS (6)
  1. AVANDIA [Suspect]
     Dosage: 4MG PER DAY
     Route: 048
     Dates: start: 20050310, end: 20100723
  2. CANDESARTAN CILEXETIL [Concomitant]
     Dosage: 16MG PER DAY
     Route: 048
  3. SIMVASTATIN [Concomitant]
     Dosage: 20MG PER DAY
     Route: 048
  4. LEVOTHYROXINE SODIUM [Concomitant]
     Dosage: 100MG PER DAY
     Route: 065
  5. ASPIRIN [Concomitant]
     Dosage: 75MG PER DAY
     Route: 065
  6. FERROUS FUMARATE [Concomitant]
     Dosage: 1TAB THREE TIMES PER DAY
     Route: 048

REACTIONS (3)
  - ANAEMIA [None]
  - DYSPNOEA [None]
  - FATIGUE [None]
